FAERS Safety Report 12207974 (Version 1)
Quarter: 2016Q1

REPORT INFORMATION
  Report Type: Report from Study
  Country: US (occurrence: US)
  Receive Date: 20160324
  Receipt Date: 20160324
  Transmission Date: 20160526
  Serious: Yes (Other)
  Sender: FDA-Public Use
  Company Number: US-BAXTER-2016BAX016232

PATIENT

DRUGS (3)
  1. CYTOXAN [Suspect]
     Active Substance: CYCLOPHOSPHAMIDE
     Route: 048
  2. CYTOXAN [Suspect]
     Active Substance: CYCLOPHOSPHAMIDE
     Indication: NEOPLASM MALIGNANT
     Route: 048
  3. VELIPARIB (ABT-888) [Suspect]
     Active Substance: VELIPARIB
     Indication: NEOPLASM MALIGNANT
     Route: 048

REACTIONS (2)
  - Disease progression [Unknown]
  - Therapy responder [Unknown]
